FAERS Safety Report 23545029 (Version 1)
Quarter: 2024Q1

REPORT INFORMATION
  Report Type: Spontaneous
  Country: US (occurrence: None)
  Receive Date: 20240220
  Receipt Date: 20240220
  Transmission Date: 20240409
  Serious: Yes (Hospitalization)
  Sender: FDA-Public Use
  Company Number: US-ROCHE-3511252

PATIENT
  Age: 82 Year
  Sex: Male

DRUGS (1)
  1. ROZLYTREK [Suspect]
     Active Substance: ENTRECTINIB
     Indication: Non-small cell lung cancer
     Route: 065

REACTIONS (9)
  - Cardiac failure [Recovering/Resolving]
  - Hypotension [Recovering/Resolving]
  - Dyspnoea [Recovering/Resolving]
  - Hip fracture [Recovering/Resolving]
  - Fatigue [Recovering/Resolving]
  - Cardiorenal syndrome [Recovering/Resolving]
  - Dizziness [Recovering/Resolving]
  - Fluid retention [Recovering/Resolving]
  - Thrombosis [Recovering/Resolving]
